FAERS Safety Report 10573746 (Version 1)
Quarter: 2014Q4

REPORT INFORMATION
  Report Type: Spontaneous
  Country: PL (occurrence: PL)
  Receive Date: 20141110
  Receipt Date: 20141110
  Transmission Date: 20150529
  Serious: Yes (Hospitalization, Other)
  Sender: FDA-Public Use
  Company Number: PL-JNJFOC-20141018595

PATIENT
  Age: 32 Year
  Sex: Female
  Weight: 52 kg

DRUGS (3)
  1. TOPAMAX [Suspect]
     Active Substance: TOPIRAMATE
     Indication: EPILEPSY
     Route: 048
  2. TOPAMAX [Suspect]
     Active Substance: TOPIRAMATE
     Indication: EPILEPSY
     Route: 048
     Dates: start: 201206, end: 20140116
  3. DEPAKINE CHRONO [Concomitant]
     Active Substance: VALPROATE SODIUM
     Indication: EPILEPSY
     Route: 065
     Dates: start: 2003

REACTIONS (9)
  - Depressed mood [Recovered/Resolved]
  - Headache [Recovered/Resolved]
  - Weight decreased [Recovered/Resolved]
  - Paraesthesia [Recovered/Resolved]
  - Chest pain [Recovered/Resolved]
  - Chest discomfort [Recovered/Resolved]
  - Dyspnoea [Recovered/Resolved]
  - Tearfulness [Recovered/Resolved]
  - Asthenia [Recovered/Resolved]

NARRATIVE: CASE EVENT DATE: 201303
